FAERS Safety Report 6153740-0 (Version None)
Quarter: 2009Q2

REPORT INFORMATION
  Report Type: 
  Country: None (occurrence: None)
  Receive Date: 20090410
  Receipt Date: 20090403
  Transmission Date: 20091009
  Serious: Yes (Death)
  Sender: FDA-Public Use
  Company Number: 2009US001010

PATIENT
  Age: 21 Year
  Sex: Female

DRUGS (1)
  1. PROGRAF [Suspect]
     Indication: SMALL INTESTINE TRANSPLANT
     Dosage: 4 MG, BID, ORAL
     Route: 048

REACTIONS (1)
  - DEATH [None]
